FAERS Safety Report 6187628-6 (Version None)
Quarter: 2009Q2

REPORT INFORMATION
  Report Type: 
  Country: None (occurrence: None)
  Receive Date: 20090511
  Receipt Date: 20090505
  Transmission Date: 20091009
  Serious: Yes (Hospitalization)
  Sender: FDA-Public Use
  Company Number: CERZ-1000618

PATIENT
  Age: 22 Month
  Sex: Male
  Weight: 7.8 kg

DRUGS (6)
  1. CEREZYME [Suspect]
     Indication: GAUCHER'S DISEASE
     Dosage: 800 U, QW, INTRAVENOUS
     Route: 042
     Dates: start: 20080521
  2. BENADRYL [Concomitant]
  3. ACETAMINOPHEN [Concomitant]
  4. GLYCOPYRROLATE [Concomitant]
  5. POLY VI SOL (POLY VI SOL) [Concomitant]
  6. FERROUS SULFATE TAB [Concomitant]

REACTIONS (7)
  - COUGH [None]
  - DYSPNOEA [None]
  - HYPOTONIA [None]
  - PETECHIAE [None]
  - RESPIRATORY TRACT CONGESTION [None]
  - RESPIRATORY TRACT INFECTION VIRAL [None]
  - VIRAL INFECTION [None]
